FAERS Safety Report 9257199 (Version 1)
Quarter: 2013Q2

REPORT INFORMATION
  Report Type: Spontaneous
  Country: DE (occurrence: DE)
  Receive Date: 20130426
  Receipt Date: 20130426
  Transmission Date: 20140414
  Serious: Yes (Other)
  Sender: FDA-Public Use
  Company Number: PHHY2013DE009186

PATIENT
  Age: 69 Year
  Sex: Female
  Weight: 54 kg

DRUGS (2)
  1. FEMARA [Suspect]
     Indication: BREAST CANCER
     Dosage: 2.5 MG, UNK
     Route: 048
     Dates: start: 20100712, end: 20130202
  2. LETROZOLE [Concomitant]
     Dosage: UNK UKN, UNK
     Dates: end: 201301

REACTIONS (11)
  - Myeloproliferative disorder [Unknown]
  - Cerebral ischaemia [Recovered/Resolved]
  - Muscular weakness [Recovered/Resolved]
  - Monoplegia [Recovered/Resolved]
  - Transient ischaemic attack [Unknown]
  - Infection [Unknown]
  - Blood lactate dehydrogenase increased [Unknown]
  - Blood uric acid increased [Unknown]
  - Platelet count increased [Unknown]
  - Blood alkaline phosphatase increased [Unknown]
  - Headache [Unknown]
